FAERS Safety Report 5307980-0 (Version None)
Quarter: 2007Q2

REPORT INFORMATION
  Report Type: 
  Country: None (occurrence: None)
  Receive Date: 20070426
  Receipt Date: 20070413
  Transmission Date: 20071010
  Serious: Yes (Hospitalization)
  Sender: FDA-Public Use
  Company Number: 2007AP00649

PATIENT
  Age: 26013 Day
  Sex: Female

DRUGS (4)
  1. ARIMIDEX [Suspect]
     Indication: BREAST CANCER
     Route: 048
     Dates: start: 20061219, end: 20070128
  2. HYPEN [Concomitant]
     Route: 048
     Dates: start: 20061207, end: 20070121
  3. AMOBAN [Concomitant]
     Route: 048
     Dates: start: 20061207, end: 20070128
  4. SENNOSIDE [Concomitant]
     Route: 048
     Dates: start: 20061207

REACTIONS (2)
  - LEUKOPENIA [None]
  - PNEUMONIA [None]
